FAERS Safety Report 20246073 (Version 2)
Quarter: 2022Q2

REPORT INFORMATION
  Report Type: Spontaneous
  Country: IN (occurrence: IN)
  Receive Date: 20211229
  Receipt Date: 20220602
  Transmission Date: 20220720
  Serious: Yes (Hospitalization, Other)
  Sender: FDA-Public Use
  Company Number: IN-MACLEODS PHARMACEUTICALS US LTD-MAC2021033888

PATIENT

DRUGS (2)
  1. PANTOPRAZOLE [Suspect]
     Active Substance: PANTOPRAZOLE
     Indication: Gastrooesophageal reflux disease
     Dosage: UNK
     Route: 065
  2. RABEPRAZOLE [Suspect]
     Active Substance: RABEPRAZOLE
     Indication: Gastrooesophageal reflux disease
     Dosage: UNK
     Route: 065

REACTIONS (6)
  - Systemic candida [Unknown]
  - Neutrophilia [Unknown]
  - Hypoglycaemia [Unknown]
  - Gastric perforation [Recovered/Resolved]
  - Leukocytosis [Unknown]
  - Anaemia [Unknown]
